FAERS Safety Report 10425653 (Version 3)
Quarter: 2014Q4

REPORT INFORMATION
  Report Type: Report from Study
  Country: CA (occurrence: CA)
  Receive Date: 20140903
  Receipt Date: 20141008
  Transmission Date: 20150528
  Serious: Yes (Hospitalization, Other)
  Sender: FDA-Public Use
  Company Number: CA-AMGEN-CANSP2012005659

PATIENT
  Age: 59 Year
  Sex: Male
  Weight: 73.47 kg

DRUGS (2)
  1. ENBREL [Suspect]
     Active Substance: ETANERCEPT
     Indication: ANKYLOSING SPONDYLITIS
     Dosage: 50 MG, QWK
     Route: 065
     Dates: start: 20070221
  2. MELOXICAM. [Concomitant]
     Active Substance: MELOXICAM
     Dosage: UNK

REACTIONS (13)
  - Ankylosing spondylitis [Unknown]
  - Weight bearing difficulty [Unknown]
  - Constipation [Unknown]
  - Gait disturbance [Unknown]
  - Diverticulitis [Unknown]
  - Hernia [Recovered/Resolved]
  - Prostatomegaly [Unknown]
  - Knee arthroplasty [Recovered/Resolved]
  - Gastric operation [Recovered/Resolved]
  - Arthropathy [Unknown]
  - Joint swelling [Unknown]
  - Weight decreased [Recovering/Resolving]
  - Joint range of motion decreased [Unknown]

NARRATIVE: CASE EVENT DATE: 20111208
